FAERS Safety Report 8121125-3 (Version None)
Quarter: 2012Q2

REPORT INFORMATION
  Report Type: 
  Country: None (occurrence: None)
  Receive Date: 20120208
  Receipt Date: 20120130
  Transmission Date: 20120825
  Serious: Yes (Hospitalization)
  Sender: FDA-Public Use
  Company Number: FR-BRISTOL-MYERS SQUIBB COMPANY-16385700

PATIENT
  Age: 66 Year
  Sex: Male

DRUGS (9)
  1. CARBOPLATIN [Suspect]
     Indication: HYPOPHARYNGEAL CANCER STAGE II
     Dosage: CARBOPLATINE HOSPIRA SOLUTION FOR INJ
     Route: 042
     Dates: start: 20101007, end: 20101105
  2. ATACAND [Suspect]
     Indication: HYPERTENSION
     Dosage: 16MG TABS
     Route: 048
     Dates: end: 20101109
  3. KAYEXALATE [Concomitant]
  4. ERBITUX [Suspect]
     Indication: HEAD AND NECK CANCER
     Route: 042
     Dates: start: 20101007, end: 20101105
  5. TICLID [Concomitant]
  6. CRESTOR [Concomitant]
     Dosage: 10MG
  7. NEXIUM [Concomitant]
  8. PROPRANOLOL [Concomitant]
     Dosage: 160MG
  9. LERCANIDIPINE [Suspect]
     Indication: HYPERTENSION
     Dosage: 10MG
     Route: 048
     Dates: end: 20101109

REACTIONS (5)
  - RENAL FAILURE ACUTE [None]
  - HYPOVOLAEMIC SHOCK [None]
  - VOMITING [None]
  - DIARRHOEA [None]
  - PANCYTOPENIA [None]
